FAERS Safety Report 18862717 (Version 2)
Quarter: 2021Q1

REPORT INFORMATION
  Report Type: Spontaneous
  Country: JP (occurrence: JP)
  Receive Date: 20210208
  Receipt Date: 20210217
  Transmission Date: 20210420
  Serious: Yes (Hospitalization)
  Sender: FDA-Public Use
  Company Number: JP-009507513-2102JPN002745

PATIENT
  Age: 70 Year
  Sex: Female

DRUGS (13)
  1. NEXIUM [Concomitant]
     Active Substance: ESOMEPRAZOLE MAGNESIUM
     Indication: COLITIS ULCERATIVE
     Dosage: 20 MILLIGRAM PER DAY AFTER BREAKFAST
     Route: 048
     Dates: end: 20210128
  2. PREDONINE [Concomitant]
     Active Substance: PREDNISOLONE
     Indication: COLITIS ULCERATIVE
     Dosage: 5 MILLIGRAM/DAY
     Route: 048
     Dates: start: 20201215, end: 20201218
  3. PREDONINE [Concomitant]
     Active Substance: PREDNISOLONE
     Dosage: 7.5 MILLIGRAM/DAY
     Route: 048
     Dates: start: 20201219, end: 20201222
  4. PENTASA [Concomitant]
     Active Substance: MESALAMINE
     Indication: COLITIS ULCERATIVE
     Dosage: 4000 MILLIGRAM/DAY AFTER BREAKFAST AND SUPPER
     Route: 048
     Dates: start: 200908, end: 20210128
  5. SODIUM FERROUS CITRATE [Concomitant]
     Active Substance: SODIUM FERROUS CITRATE
     Indication: COLITIS ULCERATIVE
     Dosage: 50 MILLIGRAM PER DAY AFTER BREAKFAST
     Route: 048
     Dates: end: 20210128
  6. PREDONINE [Concomitant]
     Active Substance: PREDNISOLONE
     Dosage: 10 MILLIGRAM/DAY
     Route: 048
     Dates: start: 20210115
  7. PREDONINE [Concomitant]
     Active Substance: PREDNISOLONE
     Dosage: 30 MILLIGRAM/DAY
     Route: 048
     Dates: start: 20201223, end: 20201228
  8. ALENDRONATE SODIUM. [Suspect]
     Active Substance: ALENDRONATE SODIUM
     Dosage: 900 MICROGRAM PER 4 WEEKS
     Route: 041
     Dates: start: 20201216, end: 20210114
  9. JANUVIA [Concomitant]
     Active Substance: SITAGLIPTIN PHOSPHATE
     Indication: DIABETES MELLITUS
     Dosage: 50 MILLIGRAM PER DAY AFTER BREAKFAST
     Route: 048
     Dates: end: 20210128
  10. PREDONINE [Concomitant]
     Active Substance: PREDNISOLONE
     Dosage: 20 MILLIGRAM/DAY
     Route: 048
     Dates: start: 20210104, end: 20210114
  11. BAKTAR [Suspect]
     Active Substance: SULFAMETHOXAZOLE\TRIMETHOPRIM
     Dosage: 1 DF DAILY, AFTER BREAKFAST
     Route: 048
     Dates: start: 20201223, end: 20210125
  12. BIO?THREE [Concomitant]
     Active Substance: HERBALS
     Indication: COLITIS ULCERATIVE
     Dosage: 3 GRAM PER DAY AFTER EACH MEAL
     Route: 048
     Dates: end: 20210128
  13. PREDONINE [Concomitant]
     Active Substance: PREDNISOLONE
     Dosage: 25 MILLIGRAM/DAY
     Route: 048
     Dates: start: 20201229, end: 20210103

REACTIONS (5)
  - Altered state of consciousness [Unknown]
  - Rash [Recovering/Resolving]
  - Hepatic function abnormal [Not Recovered/Not Resolved]
  - Pyrexia [Recovering/Resolving]
  - Renal disorder [Unknown]

NARRATIVE: CASE EVENT DATE: 20210115
